FAERS Safety Report 19287942 (Version 6)
Quarter: 2022Q4

REPORT INFORMATION
  Report Type: Report from Study
  Country: CN (occurrence: CN)
  Receive Date: 20210521
  Receipt Date: 20221205
  Transmission Date: 20230113
  Serious: Yes (Hospitalization, Other)
  Sender: FDA-Public Use
  Company Number: CN-TAKEDA-2021TUS032061

PATIENT
  Age: 64 Year
  Sex: Female
  Weight: 60 kg

DRUGS (28)
  1. IXAZOMIB [Suspect]
     Active Substance: IXAZOMIB
     Indication: Plasma cell myeloma
     Dosage: 4 MILLIGRAM, 1/WEEK
     Route: 048
     Dates: start: 20201217, end: 20211102
  2. IXAZOMIB [Suspect]
     Active Substance: IXAZOMIB
     Dosage: 4 MILLIGRAM
     Route: 048
     Dates: start: 20211103
  3. LENALIDOMIDE [Suspect]
     Active Substance: LENALIDOMIDE
     Indication: Plasma cell myeloma
     Dosage: 25 MILLIGRAM, QD
     Route: 048
     Dates: start: 20201217
  4. GABAPENTIN [Concomitant]
     Active Substance: GABAPENTIN
     Indication: Neuropathy peripheral
     Dosage: 0.3 GRAM, TID
     Route: 048
     Dates: start: 20210113
  5. .ALPHA.-LIPOIC ACID [Concomitant]
     Active Substance: .ALPHA.-LIPOIC ACID
     Indication: Neuropathy peripheral
     Dosage: 0.3 GRAM, QD
     Route: 042
     Dates: start: 20210224, end: 20210225
  6. OMEPRAZOLE SODIUM [Concomitant]
     Active Substance: OMEPRAZOLE SODIUM
     Indication: Prophylaxis
     Dosage: 40 MILLIGRAM, QD
     Route: 042
     Dates: start: 20210203, end: 20210225
  7. KETOCONAZOLE;NAFTIFINE HYDROCHLORIDE [Concomitant]
     Indication: Pruritus
     Dosage: UNK UNK, BID
     Route: 061
     Dates: start: 20210224
  8. METOCLOPRAMIDE DIHYDROCHLORIDE [METOCLOPRAMIDE HYDROCHLORIDE] [Concomitant]
     Indication: Antiemetic supportive care
     Dosage: 10 MILLIGRAM
     Route: 030
     Dates: start: 20210224, end: 20210224
  9. METHYLCOBALAMIN [Concomitant]
     Active Substance: METHYLCOBALAMIN
     Indication: Neuropathy peripheral
     Dosage: 0.5 MILLIGRAM, TID
     Route: 048
     Dates: start: 20201119
  10. INSULIN DETEMIR [Concomitant]
     Active Substance: INSULIN DETEMIR
     Indication: Diabetes mellitus
     Dosage: UNK UNK, QD
     Route: 025
     Dates: start: 20201118
  11. INSULIN ASPART [Concomitant]
     Active Substance: INSULIN ASPART
     Indication: Diabetes mellitus
     Dosage: UNK UNK, TID
     Route: 025
     Dates: start: 20201118
  12. SIMVASTATIN [Concomitant]
     Active Substance: SIMVASTATIN
     Indication: Hyperlipidaemia
     Dosage: 20 MILLIGRAM
     Route: 048
     Dates: start: 20201203
  13. OXYCODONE AND ACETAMINOPHEN [Concomitant]
     Active Substance: ACETAMINOPHEN\OXYCODONE HYDROCHLORIDE
     Indication: Analgesic therapy
     Dosage: UNK UNK, Q8HR
     Route: 048
     Dates: start: 20210409
  14. CALCIUM CARBONATE\CHOLECALCIFEROL [Concomitant]
     Active Substance: CALCIUM CARBONATE\CHOLECALCIFEROL
     Indication: Mineral supplementation
     Dosage: 0.6 GRAM, QD
     Route: 048
     Dates: start: 20201119
  15. ACYCLOVIR [Concomitant]
     Active Substance: ACYCLOVIR
     Indication: Herpes zoster
     Dosage: 0.2 GRAM, TID
     Route: 048
     Dates: start: 20201119
  16. FENOFIBRATE [Concomitant]
     Active Substance: FENOFIBRATE
     Indication: Hyperlipidaemia
     Dosage: 0.2 GRAM, QD
     Route: 048
     Dates: start: 20201119
  17. MEDROXYPROGESTERONE ACETATE [Concomitant]
     Active Substance: MEDROXYPROGESTERONE ACETATE
     Indication: Decreased appetite
     Dosage: 0.25 GRAM, QD
     Route: 048
     Dates: start: 20201218
  18. HYDROTALCITE [Concomitant]
     Active Substance: HYDROTALCITE
     Indication: Prophylaxis
     Dosage: 1 GRAM, BID
     Route: 048
     Dates: start: 20210102
  19. GLYCYRRHIZA [Concomitant]
     Active Substance: LICORICE
     Indication: Supplementation therapy
     Dosage: 10 MILLILITER, TID
     Route: 048
     Dates: start: 20210102
  20. SPIRONOLACTONE [Concomitant]
     Active Substance: SPIRONOLACTONE
     Indication: Prophylaxis
     Dosage: 20 MILLIGRAM, BID
     Route: 048
     Dates: start: 20210116
  21. ONDANSETRON HYDROCHLORIDE [Concomitant]
     Active Substance: ONDANSETRON HYDROCHLORIDE
     Indication: Prophylaxis
     Dosage: 20 MILLIGRAM, BID
     Route: 048
     Dates: start: 20210116
  22. METRONIDAZOLE [Concomitant]
     Active Substance: METRONIDAZOLE
     Indication: Antiemetic supportive care
     Dosage: 4 MILLIGRAM, BID
     Route: 048
     Dates: start: 20210116
  23. METRONIDAZOLE [Concomitant]
     Active Substance: METRONIDAZOLE
     Indication: Prophylaxis
     Dosage: 0.2 GRAM, TID
     Route: 048
     Dates: start: 20210116
  24. CEFUROXIME SODIUM [Concomitant]
     Active Substance: CEFUROXIME SODIUM
     Indication: Prophylaxis
     Dosage: 1.5 GRAM, Q12H
     Route: 042
     Dates: start: 20210204, end: 20210207
  25. MUPIROCIN [Concomitant]
     Active Substance: MUPIROCIN
     Indication: Dermatitis
     Dosage: UNK UNK, TID
     Route: 065
     Dates: start: 20210204
  26. TROPISETRON HYDROCHLORIDE [Concomitant]
     Active Substance: TROPISETRON HYDROCHLORIDE
     Indication: Prophylaxis of nausea and vomiting
     Dosage: 10 MILLIGRAM
     Route: 042
     Dates: start: 20210407, end: 20210407
  27. TROPISETRON HYDROCHLORIDE [Concomitant]
     Active Substance: TROPISETRON HYDROCHLORIDE
     Indication: Antiemetic supportive care
  28. FUROSEMIDE [Concomitant]
     Active Substance: FUROSEMIDE
     Indication: Swelling
     Dosage: 20 MILLIGRAM, BID
     Route: 048
     Dates: start: 20210116

REACTIONS (5)
  - Epulis [Recovered/Resolved with Sequelae]
  - Osteomyelitis [Recovered/Resolved]
  - Trigeminal neuralgia [Not Recovered/Not Resolved]
  - Paronychia [Not Recovered/Not Resolved]
  - Off label use [Unknown]

NARRATIVE: CASE EVENT DATE: 20210224
